FAERS Safety Report 9433348 (Version 5)
Quarter: 2014Q1

REPORT INFORMATION
  Report Type: Report from Study
  Country: US (occurrence: US)
  Receive Date: 20130731
  Receipt Date: 20140311
  Transmission Date: 20141002
  Serious: Yes (Death, Hospitalization)
  Sender: FDA-Public Use
  Company Number: US-ACTELION-A-US2013-85870

PATIENT
  Age: 79 Year
  Sex: Female

DRUGS (3)
  1. VENTAVIS [Suspect]
     Indication: PULMONARY ARTERIAL HYPERTENSION
     Dosage: UNK
     Route: 055
  2. ADCIRCA [Concomitant]
  3. COUMADIN [Concomitant]

REACTIONS (5)
  - Death [Fatal]
  - Lymphoedema [Unknown]
  - Oedema [Unknown]
  - Malaise [Unknown]
  - Rash [Unknown]
